FAERS Safety Report 23730810 (Version 1)
Quarter: 2024Q2

REPORT INFORMATION
  Report Type: Spontaneous
  Country: US (occurrence: US)
  Receive Date: 20240411
  Receipt Date: 20240411
  Transmission Date: 20240716
  Serious: No
  Sender: FDA-Public Use
  Company Number: US-JNJFOC-20240414588

PATIENT
  Age: 38 Year
  Sex: Male

DRUGS (2)
  1. RISPERDAL [Suspect]
     Active Substance: RISPERIDONE
     Indication: Product used for unknown indication
     Dosage: 1/2 TABLET AT BEDTIME
     Route: 048
     Dates: start: 202404, end: 202404
  2. RISPERDAL [Suspect]
     Active Substance: RISPERIDONE
     Dosage: TITRATED UP TO 2 MG
     Route: 048
     Dates: start: 202404

REACTIONS (2)
  - Visual impairment [Unknown]
  - Rash erythematous [Recovered/Resolved]

NARRATIVE: CASE EVENT DATE: 20240401
